FAERS Safety Report 10949171 (Version 1)
Quarter: 2015Q1

REPORT INFORMATION
  Report Type: Spontaneous
  Country: US (occurrence: None)
  Receive Date: 20150323
  Receipt Date: 20150323
  Transmission Date: 20150721
  Serious: Yes (Hospitalization)
  Sender: FDA-Public Use
  Company Number: None

PATIENT
  Age: 45 Year
  Sex: Male
  Weight: 92 kg

DRUGS (1)
  1. INTRON A [Suspect]
     Active Substance: INTERFERON ALFA-2B
     Dosage: 264 MU
     Dates: end: 20140425

REACTIONS (4)
  - Disturbance in attention [None]
  - Fatigue [None]
  - Failure to thrive [None]
  - Nystagmus [None]

NARRATIVE: CASE EVENT DATE: 20140428
